FAERS Safety Report 8463162-5 (Version None)
Quarter: 2012Q2

REPORT INFORMATION
  Report Type: 
  Country: None (occurrence: None)
  Receive Date: 20120625
  Receipt Date: 20120620
  Transmission Date: 20120825
  Serious: Yes (Hospitalization)
  Sender: FDA-Public Use
  Company Number: IT-BAYER-2012-057767

PATIENT
  Age: 80 Year
  Sex: Female

DRUGS (11)
  1. ATORVASTATIN CALCIUM [Concomitant]
     Dosage: 20 MG, QD
     Route: 048
     Dates: start: 20091114
  2. ZOMETA [Concomitant]
     Dosage: 4 MG, QD
     Route: 042
     Dates: start: 20091202, end: 20101220
  3. SORAFENIB (RAF KINASE INHIBITOR) [Suspect]
     Indication: METASTATIC RENAL CELL CARCINOMA
     Dosage: 400 MG, BID
     Dates: start: 20091104, end: 20100111
  4. TICLOPIDINE HCL [Concomitant]
     Dosage: 250 MG, QD
     Route: 048
     Dates: start: 20091114
  5. SORAFENIB (RAF KINASE INHIBITOR) [Suspect]
     Dosage: 400 MG, BID
     Dates: end: 20100802
  6. SORAFENIB (RAF KINASE INHIBITOR) [Suspect]
     Dosage: 400 MG, BID
     Dates: end: 20101226
  7. OMEPRAZOLE [Concomitant]
     Dosage: 20 MG, QD
     Route: 048
     Dates: start: 20091114
  8. MICARDIS [Concomitant]
     Dosage: 80 MG, QD
     Route: 048
     Dates: start: 20091114
  9. ZOLPIDEM TARTRATE [Concomitant]
     Dosage: 10 MG, QD
     Route: 048
     Dates: start: 20091114
  10. TORADOL [Concomitant]
     Dosage: 30 MG, TID
     Route: 030
     Dates: start: 20091214
  11. OLMESARTAN MEDOXOMIL [Concomitant]
     Dosage: 40 MG, BID
     Route: 048
     Dates: start: 20100111

REACTIONS (6)
  - NAUSEA [None]
  - VOMITING [None]
  - HYPERTENSION [None]
  - ANAEMIA [None]
  - ABDOMINAL PAIN UPPER [None]
  - HYPERCREATINAEMIA [None]
